FAERS Safety Report 13326974 (Version 2)
Quarter: 2017Q2

REPORT INFORMATION
  Report Type: Spontaneous
  Country: US (occurrence: US)
  Receive Date: 20170313
  Receipt Date: 20170408
  Transmission Date: 20170830
  Serious: Yes (Hospitalization, Other)
  Sender: FDA-Public Use
  Company Number: US-ACI HEALTHCARE LIMITED-1064163

PATIENT
  Age: 51 Year
  Sex: Male

DRUGS (9)
  1. GABAPENTIN. [Suspect]
     Active Substance: GABAPENTIN
     Indication: RESTLESS LEGS SYNDROME
  2. TRAZODONE [Concomitant]
     Active Substance: TRAZODONE HYDROCHLORIDE
     Route: 065
  3. PANTOPRAZOLE [Concomitant]
     Active Substance: PANTOPRAZOLE
     Route: 065
  4. FLUTICASONE/SALMETEROL [Concomitant]
     Active Substance: FLUTICASONE PROPIONATE\SALMETEROL XINAFOATE
     Route: 065
  5. RANITIDINE. [Concomitant]
     Active Substance: RANITIDINE
     Route: 065
  6. ALBUTEROL HFA [Concomitant]
     Active Substance: ALBUTEROL SULFATE
     Route: 065
  7. BUPROPION SR [Concomitant]
     Active Substance: BUPROPION HYDROCHLORIDE
     Route: 065
  8. VARENICLINE [Concomitant]
     Active Substance: VARENICLINE
     Route: 065
  9. MESALAMINE. [Concomitant]
     Active Substance: MESALAMINE
     Route: 065

REACTIONS (8)
  - Drug withdrawal convulsions [Unknown]
  - Drug use disorder [Recovered/Resolved]
  - Seizure [Unknown]
  - Anxiety [Unknown]
  - Intentional overdose [Recovered/Resolved]
  - Compulsions [Unknown]
  - Hyponatraemia [Unknown]
  - Depression [Unknown]
